FAERS Safety Report 13442638 (Version 1)
Quarter: 2017Q2

REPORT INFORMATION
  Report Type: Spontaneous
  Country: US (occurrence: US)
  Receive Date: 20170411
  Receipt Date: 20170411
  Transmission Date: 20170830
  Serious: Yes (Hospitalization)
  Sender: FDA-Public Use
  Company Number: None

PATIENT
  Age: 71 Year
  Sex: Male
  Weight: 101 kg

DRUGS (1)
  1. HYDROCODONE/PHENYLEPHRINE/PYRILAMINE [Suspect]
     Active Substance: HYDROCODONE\PHENYLEPHRINE HYDROCHLORIDE\PYRILAMINE MALEATE
     Dates: start: 20110330, end: 20110330

REACTIONS (1)
  - Dizziness [None]

NARRATIVE: CASE EVENT DATE: 20110330
